FAERS Safety Report 12193583 (Version 1)
Quarter: 2016Q1

REPORT INFORMATION
  Report Type: Report from Study
  Country: US (occurrence: US)
  Receive Date: 20160320
  Receipt Date: 20160320
  Transmission Date: 20160526
  Serious: No
  Sender: FDA-Public Use
  Company Number: US-AMGEN-USASL2016030463

PATIENT
  Age: 64 Year
  Sex: Male

DRUGS (1)
  1. ENBREL [Suspect]
     Active Substance: ETANERCEPT
     Indication: RHEUMATOID ARTHRITIS
     Dosage: 50 MG, SOMETIMES EVERY 12 DAYS OR EVERY 2 WEEKS
     Route: 065
     Dates: start: 2005

REACTIONS (3)
  - Bronchitis [Unknown]
  - Intentional product misuse [Unknown]
  - Hypoacusis [Unknown]

NARRATIVE: CASE EVENT DATE: 2005
